FAERS Safety Report 9275549 (Version 2)
Quarter: 2013Q2

REPORT INFORMATION
  Report Type: Spontaneous
  Country: JP (occurrence: None)
  Receive Date: 20130430
  Receipt Date: 20130430
  Transmission Date: 20140414
  Serious: Yes (Hospitalization)
  Sender: FDA-Public Use
  Company Number: JP-011566

PATIENT
  Age: 72 Year
  Sex: Male

DRUGS (2)
  1. GONAX [Suspect]
     Indication: PROSTATE CANCER
     Route: 058
     Dates: start: 20130323, end: 20130323
  2. ESTRACYT [Concomitant]

REACTIONS (1)
  - Cerebral infarction [None]
